FAERS Safety Report 14892357 (Version 1)
Quarter: 2018Q2

REPORT INFORMATION
  Report Type: Spontaneous
  Country: US (occurrence: US)
  Receive Date: 20180514
  Receipt Date: 20180514
  Transmission Date: 20180711
  Serious: No
  Sender: FDA-Public Use
  Company Number: US-UNITED THERAPEUTICS-UNT-2018-002567

PATIENT
  Age: 56 Year
  Sex: Male
  Weight: 78.5 kg

DRUGS (2)
  1. REMODULIN [Suspect]
     Active Substance: TREPROSTINIL
     Indication: PULMONARY ARTERIAL HYPERTENSION
  2. REMODULIN [Suspect]
     Active Substance: TREPROSTINIL
     Indication: PULMONARY HYPERTENSION
     Dosage: 0.056 ?G/KG, CONTINUING
     Route: 058
     Dates: start: 20160331

REACTIONS (4)
  - Pyrexia [Unknown]
  - Infusion site haemorrhage [Not Recovered/Not Resolved]
  - Infusion site infection [Unknown]
  - Infusion site swelling [Not Recovered/Not Resolved]

NARRATIVE: CASE EVENT DATE: 201802
